FAERS Safety Report 13943041 (Version 2)
Quarter: 2019Q4

REPORT INFORMATION
  Report Type: Spontaneous
  Country: JP (occurrence: JP)
  Receive Date: 20170907
  Receipt Date: 20191024
  Transmission Date: 20200122
  Serious: Yes (Life-Threatening, Hospitalization, Disabling)
  Sender: FDA-Public Use
  Company Number: PHHY2017JP082377

PATIENT
  Age: 76 Year
  Sex: Male
  Weight: 51 kg

DRUGS (15)
  1. BAKTAR [Concomitant]
     Active Substance: SULFAMETHOXAZOLE\TRIMETHOPRIM
     Indication: PRODUCT USED FOR UNKNOWN INDICATION
     Dosage: UNK
     Route: 048
     Dates: start: 20160415, end: 20160502
  2. CIPROFLOXACIN. [Suspect]
     Active Substance: CIPROFLOXACIN
     Indication: OTITIS EXTERNA
     Dosage: 400 MG, TID
     Route: 041
     Dates: start: 20160324, end: 20160414
  3. MAGMITT [Concomitant]
     Active Substance: MAGNESIUM OXIDE
     Indication: PRODUCT USED FOR UNKNOWN INDICATION
     Dosage: UNK
     Route: 065
     Dates: end: 20160616
  4. LUPRAC [Concomitant]
     Active Substance: TORSEMIDE
     Indication: PRODUCT USED FOR UNKNOWN INDICATION
     Dosage: UNK
     Route: 065
     Dates: end: 20160421
  5. PIPERACILLIN AND TAZOBACTAM [Concomitant]
     Active Substance: PIPERACILLIN SODIUM\TAZOBACTAM SODIUM
     Indication: PRODUCT USED FOR UNKNOWN INDICATION
     Dosage: UNK
     Route: 065
     Dates: start: 20160414
  6. CALONAL [Concomitant]
     Active Substance: ACETAMINOPHEN
     Indication: PRODUCT USED FOR UNKNOWN INDICATION
     Dosage: UNK
     Route: 065
     Dates: start: 20160324, end: 20160616
  7. MIYA-BM [Concomitant]
     Active Substance: CLOSTRIDIUM BUTYRICUM SPORES STRAIN M-55
     Indication: PRODUCT USED FOR UNKNOWN INDICATION
     Dosage: UNK
     Route: 065
     Dates: start: 20160325, end: 20160603
  8. MERISLON [Suspect]
     Active Substance: BETAHISTINE MESILATE
     Indication: DIZZINESS
     Dosage: 6 MG, TID
     Route: 048
     Dates: start: 20160324, end: 20160414
  9. ALLEGRA [Suspect]
     Active Substance: FEXOFENADINE HYDROCHLORIDE
     Indication: ECZEMA ASTEATOTIC
     Dosage: 60 MG, BID
     Route: 048
     Dates: start: 20160331, end: 20160414
  10. SEPAMIT [Suspect]
     Active Substance: NIFEDIPINE
     Indication: HYPERTENSION
     Dosage: 20 MG, BID
     Route: 048
     Dates: start: 20160228, end: 20160414
  11. CUBICIN [Suspect]
     Active Substance: DAPTOMYCIN
     Indication: OTITIS EXTERNA
     Dosage: 525 MG, QD
     Route: 041
     Dates: start: 20160324, end: 20160414
  12. VANCOMYCIN [Concomitant]
     Active Substance: VANCOMYCIN
     Indication: PRODUCT USED FOR UNKNOWN INDICATION
     Dosage: UNK
     Route: 065
     Dates: start: 20160414
  13. GENINAX [Concomitant]
     Active Substance: GARENOXACIN MESYLATE
     Indication: PRODUCT USED FOR UNKNOWN INDICATION
     Dosage: UNK
     Route: 065
  14. LANSOPRAZOLE. [Concomitant]
     Active Substance: LANSOPRAZOLE
     Indication: PRODUCT USED FOR UNKNOWN INDICATION
     Dosage: UNK
     Route: 065
     Dates: start: 20160324, end: 201608
  15. LOSARTAN POTASSIUM. [Concomitant]
     Active Substance: LOSARTAN POTASSIUM
     Indication: PRODUCT USED FOR UNKNOWN INDICATION
     Dosage: UNK
     Route: 065
     Dates: end: 20160421

REACTIONS (4)
  - Lung disorder [Recovered/Resolved]
  - Cardiac failure [Recovering/Resolving]
  - Acute kidney injury [Recovered/Resolved with Sequelae]
  - Pancytopenia [Recovered/Resolved]

NARRATIVE: CASE EVENT DATE: 20160414
